FAERS Safety Report 9504804 (Version 1)
Quarter: 2013Q1

REPORT INFORMATION
  Report Type: Spontaneous
  Country: FR (occurrence: None)
  Receive Date: 20130225
  Receipt Date: 20130225
  Transmission Date: 20140127
  Serious: Yes (Hospitalization)
  Sender: FDA-Public Use
  Company Number: 2012-275

PATIENT
  Age: 66 Year
  Sex: Male
  Weight: 50 kg

DRUGS (19)
  1. PRIALT (ZICONOTIDE) INTRATHECAL INFUSION [Suspect]
     Indication: PAIN
     Route: 037
     Dates: start: 20100721, end: 20100805
  2. MORPHINE SULFATE (MORPHINE SULFATE) INJECTION [Suspect]
     Indication: PAIN
     Route: 037
     Dates: start: 20100414, end: 20100419
  3. CLONIDINE HCL (CLONIDINE HYDROCHLORIDE) INJECTION [Suspect]
     Indication: PAIN
     Route: 037
     Dates: start: 20100522, end: 20100721
  4. PARACETAMOL(PARACETAMOL) [Concomitant]
  5. MACROGOL (MACROGOL) [Concomitant]
  6. OXYGENE LIQUID AIR LIQUID MEDICAL (OXYGEN) [Concomitant]
  7. DELICAL (DELICAL) [Concomitant]
  8. ZOPICLONE (ZOPICLONE) [Concomitant]
  9. ACETAZOLAMIDE (ACETAZOLAMIDE) [Concomitant]
  10. ATARAX (HYDROXYZINE) [Concomitant]
  11. POTASSIUM (POTASSIUM) [Concomitant]
  12. FUROSEMIDE (FUROSEMIDE) [Concomitant]
  13. SERETIDE (FLUTICASONE PROPIONATE, SALMETEROL XINAFOATE) [Concomitant]
  14. HYDROCORTICONE (HYDROCORTISONE) [Concomitant]
  15. PANTOPRAZOLE (PANTOPRAZOLE [Concomitant]
  16. PAROXETINE (PAROXETINE) [Concomitant]
  17. MIANSERINE (MIANSERIN HYDROCHLORIDE) [Concomitant]
  18. ACETYLSALICYLIC ACID (ACETYLSALICYLIC ACID) [Concomitant]
  19. TIOTROPIUM (TIOTROPIUIM) [Concomitant]

REACTIONS (2)
  - Anxiety [None]
  - Depression [None]
